FAERS Safety Report 5727533-X (Version None)
Quarter: 2008Q2

REPORT INFORMATION
  Report Type: 
  Country: None (occurrence: None)
  Receive Date: 20080501
  Receipt Date: 20080501
  Transmission Date: 20081010
  Serious: Yes (Other)
  Sender: FDA-Public Use
  Company Number: None

PATIENT
  Age: 52 Year
  Sex: Female
  Weight: 99.7913 kg

DRUGS (1)
  1. ZYRTEC [Suspect]
     Indication: MULTIPLE ALLERGIES
     Dosage: 10 MG 1XDAY PO
     Route: 048
     Dates: start: 20050207, end: 20080424

REACTIONS (2)
  - NO THERAPEUTIC RESPONSE [None]
  - PRURITUS GENERALISED [None]
